FAERS Safety Report 12796388 (Version 1)
Quarter: 2016Q3

REPORT INFORMATION
  Report Type: Spontaneous
  Country: US (occurrence: US)
  Receive Date: 20160929
  Receipt Date: 20160929
  Transmission Date: 20161109
  Serious: Yes (Other)
  Sender: FDA-Public Use
  Company Number: US-INCYTE CORPORATION-2016IN002659

PATIENT
  Age: 46 Year
  Sex: Male

DRUGS (2)
  1. ADVIL [Concomitant]
     Active Substance: IBUPROFEN
     Indication: PRODUCT USED FOR UNKNOWN INDICATION
  2. JAKAFI [Suspect]
     Active Substance: RUXOLITINIB
     Indication: MYELOFIBROSIS
     Dosage: 5 MG QAM; 10 MG QPM
     Route: 048

REACTIONS (4)
  - Pain [Unknown]
  - Anaemia [Unknown]
  - Dyspnoea [Unknown]
  - Epistaxis [Unknown]

NARRATIVE: CASE EVENT DATE: 20160503
